FAERS Safety Report 6031331-X (Version None)
Quarter: 2008Q4

REPORT INFORMATION
  Report Type: 
  Country: None (occurrence: None)
  Receive Date: 20081224
  Receipt Date: 20080829
  Transmission Date: 20090506
  Serious: Yes (Hospitalization)
  Sender: FDA-Public Use
  Company Number: US-CVT-080075

PATIENT
  Age: 81 Year
  Sex: Female

DRUGS (18)
  1. RANEXA [Suspect]
     Indication: CHEST PAIN
     Dosage: 500 MG, BID, ORAL; 1000 MG, BID, ORAL; 2000 MG, BID, ORAL
     Route: 048
     Dates: start: 20071001, end: 20080401
  2. RANEXA [Suspect]
     Indication: CHEST PAIN
     Dosage: 500 MG, BID, ORAL; 1000 MG, BID, ORAL; 2000 MG, BID, ORAL
     Route: 048
     Dates: start: 20080701, end: 20080701
  3. RANEXA [Suspect]
     Indication: CHEST PAIN
     Dosage: 500 MG, BID, ORAL; 1000 MG, BID, ORAL; 2000 MG, BID, ORAL
     Route: 048
     Dates: start: 20080401
  4. COUMADIN [Concomitant]
  5. ASPIRIN [Concomitant]
  6. COLCHICINE (COLCHICINE) [Concomitant]
  7. NITROGLYCERIN [Concomitant]
  8. NORVASC /00972401/ (AMLODIPINE) [Concomitant]
  9. PLAVIX [Concomitant]
  10. PROTONIX /01263201/ (PANTOPRAZOLE) [Concomitant]
  11. TENORMIN [Concomitant]
  12. MVI (VITAMINS NOS) [Concomitant]
  13. INSULIN /00030501/ (INSULIN) [Concomitant]
  14. LASIX [Concomitant]
  15. IMDUR [Concomitant]
  16. LISINOPRIL /00894001/ (LISINOPRIL) [Concomitant]
  17. REGLAN /00041901/ (METOCLOPRAMIDE) [Concomitant]
  18. ZOCOR [Concomitant]

REACTIONS (10)
  - ACCIDENTAL OVERDOSE [None]
  - ASTHENIA [None]
  - CHEST PAIN [None]
  - DYSPHONIA [None]
  - FLAT AFFECT [None]
  - HALLUCINATION [None]
  - HYPOKINESIA [None]
  - MEMORY IMPAIRMENT [None]
  - MUSCLE TWITCHING [None]
  - URINARY TRACT INFECTION [None]
